FAERS Safety Report 15361026 (Version 4)
Quarter: 2020Q4

REPORT INFORMATION
  Report Type: Spontaneous
  Country: US (occurrence: US)
  Receive Date: 20180907
  Receipt Date: 20201218
  Transmission Date: 20210113
  Serious: No
  Sender: FDA-Public Use
  Company Number: US-SA-2018SA249520

PATIENT

DRUGS (1)
  1. DUPIXENT [Suspect]
     Active Substance: DUPILUMAB
     Indication: DERMATITIS ATOPIC
     Dosage: 300 MG, QOW
     Route: 058
     Dates: start: 20180702

REACTIONS (9)
  - Dyspnoea [Recovered/Resolved]
  - Eye pruritus [Recovered/Resolved]
  - Injection site erythema [Not Recovered/Not Resolved]
  - Rash [Unknown]
  - Injection site rash [Not Recovered/Not Resolved]
  - Rash [Recovered/Resolved]
  - Injection site pruritus [Not Recovered/Not Resolved]
  - Pruritus [Recovered/Resolved]
  - Hordeolum [Not Recovered/Not Resolved]

NARRATIVE: CASE EVENT DATE: 201808
